FAERS Safety Report 9319797 (Version 1)
Quarter: 2013Q2

REPORT INFORMATION
  Report Type: Spontaneous
  Country: NL (occurrence: NL)
  Receive Date: 20130530
  Receipt Date: 20130530
  Transmission Date: 20140414
  Serious: Yes (Other)
  Sender: FDA-Public Use
  Company Number: NL-GLAXOSMITHKLINE-B0895438A

PATIENT
  Sex: Male

DRUGS (1)
  1. LAMICTAL [Suspect]
     Indication: PRODUCT USED FOR UNKNOWN INDICATION
     Route: 065

REACTIONS (13)
  - Haemorrhage [Unknown]
  - Mental impairment [Unknown]
  - Flushing [Unknown]
  - Rash pruritic [Unknown]
  - Oropharyngeal pain [Unknown]
  - Dizziness [Unknown]
  - Somnolence [Unknown]
  - Haematoma [Unknown]
  - Irritability [Unknown]
  - Sleep disorder [Unknown]
  - Dry mouth [Unknown]
  - Arthralgia [Unknown]
  - Back pain [Unknown]
